FAERS Safety Report 23993902 (Version 1)
Quarter: 2024Q2

REPORT INFORMATION
  Report Type: Spontaneous
  Country: DE (occurrence: DE)
  Receive Date: 20240620
  Receipt Date: 20240620
  Transmission Date: 20240716
  Serious: Yes (Life-Threatening, Hospitalization, Other)
  Sender: FDA-Public Use
  Company Number: None

PATIENT
  Age: 54 Year
  Sex: Male

DRUGS (19)
  1. OLANZAPINE [Suspect]
     Active Substance: OLANZAPINE
  2. ABACAVIR [Suspect]
     Active Substance: ABACAVIR
  3. LAMIVUDINE [Suspect]
     Active Substance: LAMIVUDINE
  4. DARUNAVIR [Suspect]
     Active Substance: DARUNAVIR
  5. RITONAVIR [Suspect]
     Active Substance: RITONAVIR
  6. MIRTAZAPINE [Suspect]
     Active Substance: MIRTAZAPINE
  7. ALLOPURINOL [Suspect]
     Active Substance: ALLOPURINOL
  8. CALCITRIOL [Suspect]
     Active Substance: CALCITRIOL
  9. LEVOTHYROXINE SODIUM [Suspect]
     Active Substance: LEVOTHYROXINE SODIUM
  10. BIPERIDEN [Suspect]
     Active Substance: BIPERIDEN
  11. PROPRANOLOL [Suspect]
     Active Substance: PROPRANOLOL HYDROCHLORIDE
  12. METRONIDAZOLE [Concomitant]
     Active Substance: METRONIDAZOLE
     Indication: Antibiotic therapy
  13. VANCOMYCIN [Concomitant]
     Active Substance: VANCOMYCIN
     Indication: Antibiotic therapy
  14. FIDAXOMICIN [Concomitant]
     Active Substance: FIDAXOMICIN
     Indication: Antibiotic therapy
  15. CIPROFLOXACIN [Concomitant]
     Active Substance: CIPROFLOXACIN
     Indication: Antibiotic therapy
  16. MEROPENEM [Concomitant]
     Active Substance: MEROPENEM
     Indication: Antibiotic therapy
  17. TIGECYCLINE [Concomitant]
     Active Substance: TIGECYCLINE
     Indication: Antibiotic therapy
  18. CASPOFUNGIN [Concomitant]
     Active Substance: CASPOFUNGIN
     Indication: Antibiotic therapy
  19. ACYCLOVIR [Concomitant]
     Active Substance: ACYCLOVIR
     Indication: Antibiotic therapy

REACTIONS (6)
  - Pneumonia aspiration [Recovered/Resolved]
  - Agranulocytosis [Recovered/Resolved]
  - Sepsis [Recovered/Resolved]
  - Condition aggravated [Recovered/Resolved]
  - Megacolon [Recovered/Resolved]
  - Device related infection [Recovered/Resolved]

NARRATIVE: CASE EVENT DATE: 20130101
